FAERS Safety Report 9888187 (Version 2)
Quarter: 2014Q1

REPORT INFORMATION
  Report Type: Spontaneous
  Country: GB (occurrence: GB)
  Receive Date: 20140211
  Receipt Date: 20140214
  Transmission Date: 20141002
  Serious: Yes (Death, Hospitalization)
  Sender: FDA-Public Use
  Company Number: GB-JNJFOC-20140203290

PATIENT
  Age: 21 Year
  Sex: Male
  Weight: 53 kg

DRUGS (2)
  1. REMICADE [Suspect]
     Indication: CROHN^S DISEASE
     Dosage: V1: APPROXIMATELY BIMONTHLY
     Route: 042
     Dates: start: 201008
  2. AZATHIOPRINE [Suspect]
     Indication: CROHN^S DISEASE
     Route: 065

REACTIONS (4)
  - Disseminated tuberculosis [Fatal]
  - Brain abscess [Unknown]
  - Thrombosis [Unknown]
  - Grand mal convulsion [Unknown]
